FAERS Safety Report 12007089 (Version 1)
Quarter: 2016Q1

REPORT INFORMATION
  Report Type: Report from Study
  Country: DE (occurrence: DE)
  Receive Date: 20160204
  Receipt Date: 20160204
  Transmission Date: 20160526
  Serious: Yes (Hospitalization)
  Sender: FDA-Public Use
  Company Number: DE-ABBVIE-16P-062-1548438-00

PATIENT
  Age: 61 Year
  Sex: Male

DRUGS (2)
  1. VIEKIRAX [Suspect]
     Active Substance: OMBITASVIR\PARITAPREVIR\RITONAVIR
     Indication: HEPATITIS C
     Dosage: DOSE: 25/150/100MG
     Route: 048
     Dates: start: 20150213, end: 20150508
  2. EXVIERA [Suspect]
     Active Substance: DASABUVIR
     Indication: HEPATITIS C
     Route: 048
     Dates: start: 20150213, end: 20150508

REACTIONS (3)
  - Hypertension [Recovering/Resolving]
  - Malaise [Recovering/Resolving]
  - Heart valve calcification [Recovering/Resolving]

NARRATIVE: CASE EVENT DATE: 20160104
